FAERS Safety Report 11593442 (Version 1)
Quarter: 2015Q4

REPORT INFORMATION
  Report Type: Spontaneous
  Country: US (occurrence: None)
  Receive Date: 20151002
  Receipt Date: 20151002
  Transmission Date: 20160304
  Serious: No
  Sender: FDA-Public Use
  Company Number: None

PATIENT
  Age: 69 Year
  Sex: Female
  Weight: 43.09 kg

DRUGS (11)
  1. ZYRTEX [Concomitant]
  2. FLURAZEPAM [Concomitant]
     Active Substance: FLURAZEPAM\FLURAZEPAM HYDROCHLORIDE
  3. FLONASE [Concomitant]
     Active Substance: FLUTICASONE PROPIONATE
  4. MELATONIN [Concomitant]
     Active Substance: MELATONIN
  5. AMITIZA [Suspect]
     Active Substance: LUBIPROSTONE
     Indication: IRRITABLE BOWEL SYNDROME
     Dosage: 1 PILL/CAPSULE8 HRS APART AT MEALS
     Route: 048
     Dates: start: 20150911, end: 20150915
  6. BABY ASPIRIN [Concomitant]
     Active Substance: ASPIRIN
  7. BACLOFEN. [Concomitant]
     Active Substance: BACLOFEN
  8. DOCUSATE SODIUM. [Concomitant]
     Active Substance: DOCUSATE SODIUM
  9. CARISOPRODOL. [Concomitant]
     Active Substance: CARISOPRODOL
  10. COLACE [Concomitant]
     Active Substance: DOCUSATE SODIUM
  11. PROBIOTIC [Concomitant]
     Active Substance: PROBIOTICS NOS

REACTIONS (3)
  - Muscle spasms [None]
  - Abdominal pain upper [None]
  - Diaphragmalgia [None]

NARRATIVE: CASE EVENT DATE: 20150815
